FAERS Safety Report 13984784 (Version 1)
Quarter: 2017Q3

REPORT INFORMATION
  Report Type: Spontaneous
  Country: GB (occurrence: GB)
  Receive Date: 20170918
  Receipt Date: 20170918
  Transmission Date: 20171128
  Serious: Yes (Other)
  Sender: FDA-Public Use
  Company Number: GB-BAXTER-2017BAX032494

PATIENT
  Age: 28 Week
  Weight: .85 kg

DRUGS (2)
  1. GLUCOSE 5% INTRAVENOUS INFUSION BP [Suspect]
     Active Substance: DEXTROSE
     Indication: PRODUCT USED FOR UNKNOWN INDICATION
     Dosage: 500 ML BAG, CONNECTED VIA UMBILICAL VENOUS CATHETER IN THE MORNING.
     Route: 042
     Dates: start: 20170217
  2. GLUCOSE 5% INTRAVENOUS INFUSION BP [Suspect]
     Active Substance: DEXTROSE
     Dosage: 500 ML BAG, CONNECTED VIA UMBILICAL VENOUS CATHETER, TOTAL VOLUME WAS REDUCED BACK DOWN IN THE EVENI
     Route: 042
     Dates: start: 20170217

REACTIONS (4)
  - Wrong technique in product usage process [Unknown]
  - Hyponatraemia [Unknown]
  - Hyperglycaemia [Unknown]
  - Accidental overdose [Unknown]

NARRATIVE: CASE EVENT DATE: 20170217
